FAERS Safety Report 6809554-9 (Version None)
Quarter: 2010Q2

REPORT INFORMATION
  Report Type: 
  Country: None (occurrence: None)
  Receive Date: 20100630
  Receipt Date: 20100616
  Transmission Date: 20101027
  Serious: Yes (Other)
  Sender: FDA-Public Use
  Company Number: PHHY2008CA28386

PATIENT
  Sex: Male

DRUGS (3)
  1. CLOZARIL [Suspect]
     Indication: SCHIZOPHRENIA
     Dosage: 900 MG
     Route: 048
     Dates: start: 20051001, end: 20091001
  2. VITAMIN A [Concomitant]
     Dosage: 1800 MG
  3. OLANZAPINE [Concomitant]

REACTIONS (4)
  - AGRANULOCYTOSIS [None]
  - MALNUTRITION [None]
  - NEUTROPHIL COUNT DECREASED [None]
  - WHITE BLOOD CELL COUNT DECREASED [None]
